FAERS Safety Report 8694234 (Version 4)
Quarter: 2013Q3

REPORT INFORMATION
  Report Type: Spontaneous
  Country: JP (occurrence: JP)
  Receive Date: 20120731
  Receipt Date: 20130719
  Transmission Date: 20140515
  Serious: Yes (Death)
  Sender: FDA-Public Use
  Company Number: JP-SANOFI-AVENTIS-2012SA052925

PATIENT
  Age: 60 Year
  Sex: Male
  Weight: 67.4 kg

DRUGS (10)
  1. PLAVIX [Suspect]
     Indication: PERCUTANEOUS CORONARY INTERVENTION
     Route: 048
     Dates: start: 20120208, end: 20120327
  2. PLAVIX [Suspect]
     Indication: PERCUTANEOUS CORONARY INTERVENTION
     Route: 048
     Dates: start: 20120613, end: 20120620
  3. BAYASPIRIN [Suspect]
     Indication: PERCUTANEOUS CORONARY INTERVENTION
     Route: 048
     Dates: start: 20120628, end: 20120701
  4. ANPLAG [Concomitant]
  5. PLETAAL [Concomitant]
     Dates: start: 20120215, end: 20120319
  6. PLETAAL [Concomitant]
     Dates: start: 20120613
  7. PLETAAL [Concomitant]
     Route: 048
     Dates: start: 20120620, end: 20120627
  8. HEPARIN [Concomitant]
     Dosage: ROUTE: D.I.V
     Route: 042
     Dates: start: 20120701
  9. HEPARIN [Concomitant]
     Route: 042
     Dates: end: 20120612
  10. CRESTOR /UNK/ [Concomitant]
     Dates: start: 20120215

REACTIONS (1)
  - Hepatitis fulminant [Fatal]
